FAERS Safety Report 17976721 (Version 1)
Quarter: 2020Q3

REPORT INFORMATION
  Report Type: Spontaneous
  Country: US (occurrence: US)
  Receive Date: 20200703
  Receipt Date: 20200703
  Transmission Date: 20201103
  Serious: No
  Sender: FDA-Public Use
  Company Number: US-GLAXOSMITHKLINE-US2020113051

PATIENT
  Sex: Female

DRUGS (1)
  1. NUCALA [Suspect]
     Active Substance: MEPOLIZUMAB
     Indication: ASTHMA
     Dosage: UNK UNK, Z, EVERY 4?6 WEEKS
     Route: 058
     Dates: start: 2020

REACTIONS (5)
  - Blood iron decreased [Recovering/Resolving]
  - Lethargy [Recovering/Resolving]
  - Intentional underdose [Unknown]
  - Thyroid hormones decreased [Recovering/Resolving]
  - Inappropriate schedule of product administration [Unknown]
